FAERS Safety Report 15135063 (Version 2)
Quarter: 2018Q3

REPORT INFORMATION
  Report Type: Spontaneous
  Country: IT (occurrence: IT)
  Receive Date: 20180712
  Receipt Date: 20180717
  Transmission Date: 20181010
  Serious: Yes (Hospitalization)
  Sender: FDA-Public Use
  Company Number: IT-JNJFOC-20180710754

PATIENT
  Age: 76 Year
  Sex: Female

DRUGS (8)
  1. CORLENTOR [Concomitant]
     Active Substance: IVABRADINE HYDROCHLORIDE
     Route: 065
  2. LASIX [Concomitant]
     Active Substance: FUROSEMIDE
     Route: 065
  3. BISOPROLOL HEMIFUMARATE [Concomitant]
     Active Substance: BISOPROLOL FUMARATE
     Route: 065
  4. HALDOL [Suspect]
     Active Substance: HALOPERIDOL
     Indication: COGNITIVE DISORDER
     Route: 048
     Dates: start: 20170101, end: 20171003
  5. SONIREM [Suspect]
     Active Substance: ZOLPIDEM TARTRATE
     Indication: COGNITIVE DISORDER
     Route: 048
     Dates: start: 20170101, end: 20171003
  6. PAROXETINE MESILATE [Suspect]
     Active Substance: PAROXETINE MESYLATE
     Indication: DEPRESSION
     Route: 048
     Dates: start: 20170101, end: 20171003
  7. RAMIPRIL. [Concomitant]
     Active Substance: RAMIPRIL
     Route: 065
  8. ALDACTONE [Concomitant]
     Active Substance: SPIRONOLACTONE
     Route: 065

REACTIONS (1)
  - Psychomotor hyperactivity [Unknown]

NARRATIVE: CASE EVENT DATE: 20171003
